FAERS Safety Report 13161946 (Version 1)
Quarter: 2017Q1

REPORT INFORMATION
  Report Type: Spontaneous
  Country: US (occurrence: US)
  Receive Date: 20170130
  Receipt Date: 20170130
  Transmission Date: 20170428
  Serious: No
  Sender: FDA-Public Use
  Company Number: US-AUROBINDO-AUR-APL-2016-13714

PATIENT
  Sex: Male

DRUGS (1)
  1. FLECAINIDE ACETATE TABLETS USP 50MG [Suspect]
     Active Substance: FLECAINIDE ACETATE
     Indication: PRODUCT USED FOR UNKNOWN INDICATION
     Route: 065

REACTIONS (3)
  - Spinal pain [Unknown]
  - Arthralgia [Unknown]
  - Joint swelling [Unknown]
